FAERS Safety Report 9619574 (Version 2)
Quarter: 2014Q1

REPORT INFORMATION
  Report Type: Spontaneous
  Country: US (occurrence: US)
  Receive Date: 20131014
  Receipt Date: 20140107
  Transmission Date: 20141002
  Serious: Yes (Hospitalization)
  Sender: FDA-Public Use
  Company Number: US-CELGENEUS-163-21880-13100981

PATIENT
  Age: 74 Year
  Sex: Male
  Weight: 125.08 kg

DRUGS (10)
  1. REVLIMID [Suspect]
     Indication: PLASMA CELL MYELOMA
     Dosage: 10 MILLIGRAM
     Route: 048
     Dates: start: 20130418
  2. REVLIMID [Suspect]
     Dosage: 5 MILLIGRAM
     Route: 048
     Dates: start: 201309, end: 20130928
  3. REVLIMID [Suspect]
     Dosage: 5 MILLIGRAM
     Route: 048
     Dates: start: 201311
  4. ASA [Concomitant]
     Indication: CEREBROVASCULAR ACCIDENT
     Route: 065
  5. ASA [Concomitant]
     Route: 065
  6. LATANOPROST [Concomitant]
     Indication: PRODUCT USED FOR UNKNOWN INDICATION
     Dosage: 1 DROPS
     Route: 047
  7. PHENYTOIN [Concomitant]
     Indication: CONVULSION
     Dosage: 400 MILLIGRAM
     Route: 048
  8. ZOCOR [Concomitant]
     Indication: BLOOD CHOLESTEROL INCREASED
     Route: 065
  9. ARANESP [Concomitant]
     Indication: PANCYTOPENIA
     Dosage: 14.2857 MICROGRAM
     Route: 065
  10. VELCADE [Concomitant]
     Indication: PRODUCT USED FOR UNKNOWN INDICATION
     Route: 065
     Dates: start: 201304

REACTIONS (3)
  - Troponin increased [Recovered/Resolved]
  - Sinus bradycardia [Recovering/Resolving]
  - Chest pain [Recovered/Resolved]
